FAERS Safety Report 8368516 (Version 2)
Quarter: 2013Q1

REPORT INFORMATION
  Report Type: Report from Study
  Country: US (occurrence: US)
  Receive Date: 20120128
  Receipt Date: 20130129
  Transmission Date: 20140127
  Serious: No
  Sender: FDA-Public Use
  Company Number: US-ABBOTT-11P-163-0730423-00

PATIENT
  Sex: Male
  Weight: 115.77 kg

DRUGS (6)
  1. HUMIRA 40 MG/0.8 ML PEN [Suspect]
     Indication: PSORIASIS
     Route: 058
     Dates: start: 2011, end: 201111
  2. HUMIRA 40 MG/0.8 ML PEN [Suspect]
     Dates: start: 201201
  3. LIPITOR [Concomitant]
     Indication: BLOOD CHOLESTEROL INCREASED
  4. GENERIC LOTREL [Concomitant]
     Indication: HYPERTENSION
  5. LOVASA [Concomitant]
     Indication: BLOOD CHOLESTEROL INCREASED
  6. TRILIPIX [Concomitant]
     Indication: BLOOD CHOLESTEROL INCREASED

REACTIONS (3)
  - Dyspnoea [Recovered/Resolved]
  - Weight increased [Not Recovered/Not Resolved]
  - Psoriasis [Not Recovered/Not Resolved]
